FAERS Safety Report 4487578-7 (Version None)
Quarter: 2004Q4

REPORT INFORMATION
  Report Type: 
  Country: None (occurrence: None)
  Receive Date: 20041027
  Receipt Date: 20041027
  Transmission Date: 20050328
  Serious: Yes (Hospitalization)
  Sender: FDA-Public Use
  Company Number: None

PATIENT
  Sex: Female
  Weight: 50.4 kg

DRUGS (11)
  1. RITUXIMAB [Suspect]
     Indication: CHRONIC LYMPHOCYTIC LEUKAEMIA
     Dosage: 700MG   DAY 1 AND 14   INTRAVENOU
     Route: 042
     Dates: start: 20040824, end: 20041004
  2. FLUDARABINE [Suspect]
     Dosage: DAYS 1,2,3   INTRAVENOU
     Route: 042
     Dates: start: 20040824, end: 20040923
  3. CYTOXAN [Suspect]
  4. FENTANYL [Concomitant]
  5. CELEBREX [Concomitant]
  6. COLACE [Concomitant]
  7. ACETAMINOPHEN [Concomitant]
  8. DIPHENHYDRAMINE HCL [Concomitant]
  9. COMPAZINE [Concomitant]
  10. DOLESETRON [Concomitant]
  11. ACYCLOVIR [Concomitant]

REACTIONS (3)
  - DEHYDRATION [None]
  - OEDEMA PERIPHERAL [None]
  - PAIN IN EXTREMITY [None]
